FAERS Safety Report 6842508-5 (Version None)
Quarter: 2010Q3

REPORT INFORMATION
  Report Type: 
  Country: None (occurrence: None)
  Receive Date: 20100714
  Receipt Date: 20080309
  Transmission Date: 20110219
  Serious: No
  Sender: FDA-Public Use
  Company Number: US-PFIZER INC-2007062739

PATIENT
  Sex: Female
  Weight: 68.2 kg

DRUGS (11)
  1. CHANTIX [Suspect]
     Indication: SMOKING CESSATION THERAPY
     Dates: start: 20070701
  2. NEXIUM [Concomitant]
     Indication: GASTRIC DISORDER
  3. XANAX [Concomitant]
  4. CHLORPROMAZINE [Concomitant]
  5. LITHIUM [Concomitant]
  6. PALIPERIDONE [Concomitant]
  7. BENZATROPINE [Concomitant]
  8. LITHIUM CARBONATE [Concomitant]
  9. CENESTIN [Concomitant]
  10. TOPAMAX [Concomitant]
  11. ACETYLSALICYLIC ACID [Concomitant]

REACTIONS (6)
  - ABDOMINAL PAIN UPPER [None]
  - HEADACHE [None]
  - NAUSEA [None]
  - NERVOUSNESS [None]
  - PAIN [None]
  - STRESS [None]
